FAERS Safety Report 8171426-8 (Version None)
Quarter: 2012Q1

REPORT INFORMATION
  Report Type: 
  Country: None (occurrence: None)
  Receive Date: 20120228
  Receipt Date: 20120217
  Transmission Date: 20120608
  Serious: Yes (Hospitalization)
  Sender: FDA-Public Use
  Company Number: US-BAYER-201033108NA

PATIENT
  Age: 19 Year
  Sex: Female
  Weight: 111 kg

DRUGS (8)
  1. MEDROXYPROGESTERONE [Concomitant]
     Dosage: 10 MG, UNK
     Dates: start: 20050913
  2. YASMIN [Suspect]
     Indication: ORAL CONTRACEPTION
     Route: 048
  3. LEVOTHYROXINE SODIUM [Concomitant]
     Dosage: 100 UNK, UNK
     Dates: start: 20050922
  4. PROPOXYPHENE NAPSYLATE AND ACETAMINOPHEN [Concomitant]
     Dosage: UNK
     Dates: start: 20050926
  5. PROMETHAZINE [Concomitant]
     Dosage: 25 MG, UNK
     Dates: start: 20050926
  6. YAZ [Suspect]
     Dosage: UNK
     Dates: start: 20050101
  7. MOTRIN [Concomitant]
     Indication: ABDOMINAL PAIN UPPER
     Dosage: UNK
     Dates: start: 20050912
  8. MOTRIN [Concomitant]
     Indication: VOMITING

REACTIONS (11)
  - ABDOMINAL DISTENSION [None]
  - CONSTIPATION [None]
  - BILIARY DYSKINESIA [None]
  - ANXIETY [None]
  - FLATULENCE [None]
  - DYSPEPSIA [None]
  - DEPRESSION [None]
  - CHOLECYSTITIS CHRONIC [None]
  - CHOLECYSTECTOMY [None]
  - SCAR [None]
  - DIARRHOEA [None]
